FAERS Safety Report 12743255 (Version 1)
Quarter: 2016Q3

REPORT INFORMATION
  Report Type: Spontaneous
  Country: US (occurrence: US)
  Receive Date: 20160914
  Receipt Date: 20160914
  Transmission Date: 20161109
  Serious: Yes (Other)
  Sender: FDA-Public Use
  Company Number: US-SA-2016SA168189

PATIENT
  Age: 74 Year
  Sex: Female
  Weight: 44.9 kg

DRUGS (4)
  1. SILDENAFIL. [Concomitant]
     Active Substance: SILDENAFIL
  2. REMODULIN [Concomitant]
     Active Substance: TREPROSTINIL
     Indication: PULMONARY HYPERTENSION
     Dosage: DOSE-DOSAGE WAS 35.5 NG/KG/MIN
     Route: 042
     Dates: start: 20080904
  3. PLAVIX [Suspect]
     Active Substance: CLOPIDOGREL BISULFATE
     Route: 065
  4. OPSUMIT [Concomitant]
     Active Substance: MACITENTAN

REACTIONS (1)
  - Petechiae [Unknown]

NARRATIVE: CASE EVENT DATE: 201608
